FAERS Safety Report 5066360-6 (Version None)
Quarter: 2006Q3

REPORT INFORMATION
  Report Type: 
  Country: None (occurrence: None)
  Receive Date: 20060719
  Receipt Date: 20060609
  Transmission Date: 20061208
  Serious: Yes (Death)
  Sender: FDA-Public Use
  Company Number: 06P-163-0335667-00

PATIENT

DRUGS (2)
  1. RITONAVIR SOFT GELATIN CAPSULES (NORVIR) (RITONAVIR) [Suspect]
     Dosage: 100 MG
  2. APTIVUS [Suspect]
     Dosage: 250 MG

REACTIONS (1)
  - DEATH [None]
